FAERS Safety Report 11131875 (Version 1)
Quarter: 2015Q2

REPORT INFORMATION
  Report Type: Spontaneous
  Country: US (occurrence: None)
  Receive Date: 20150521
  Receipt Date: 20150521
  Transmission Date: 20150821
  Serious: Yes (Other)
  Sender: FDA-Public Use
  Company Number: None

PATIENT
  Age: 65 Year
  Sex: Female

DRUGS (1)
  1. HUMIRA [Suspect]
     Active Substance: ADALIMUMAB
     Indication: CROHN^S DISEASE
     Dates: start: 20150420, end: 20150515

REACTIONS (3)
  - Joint stiffness [None]
  - Joint swelling [None]
  - Drug hypersensitivity [None]

NARRATIVE: CASE EVENT DATE: 20150515
